FAERS Safety Report 6715653-2 (Version None)
Quarter: 2010Q2

REPORT INFORMATION
  Report Type: 
  Country: None (occurrence: None)
  Receive Date: 20100507
  Receipt Date: 20100429
  Transmission Date: 20101027
  Serious: Yes (Death, Other)
  Sender: FDA-Public Use
  Company Number: US-ROCHE-700926

PATIENT
  Age: 18 Month
  Sex: Female

DRUGS (7)
  1. OSELTAMIVIR PHOSPHATE [Suspect]
     Indication: H1N1 INFLUENZA
     Dosage: 3 MG/KG PER DOSE; OTHER INDICATION: INFLUENZA B COINFECTION
     Route: 048
  2. VANCOMYCIN [Concomitant]
     Indication: ANTI-INFECTIVE THERAPY
  3. MEROPENEM [Concomitant]
     Indication: ANTI-INFECTIVE THERAPY
  4. MICAFUNGIN [Concomitant]
     Indication: ANTI-INFECTIVE THERAPY
  5. CYCLOSPORINE [Concomitant]
     Indication: IMMUNOSUPPRESSION
  6. METHYLPREDNISOLONE 4MG TAB [Concomitant]
     Indication: IMMUNOSUPPRESSION
  7. ETANERCEPT [Concomitant]
     Indication: IMMUNOSUPPRESSION

REACTIONS (6)
  - CYTOMEGALOVIRUS INFECTION [None]
  - DEATH [None]
  - NEUTROPENIA [None]
  - ORGANISING PNEUMONIA [None]
  - PATHOGEN RESISTANCE [None]
  - RESPIRATORY FAILURE [None]
